FAERS Safety Report 19402497 (Version 7)
Quarter: 2022Q2

REPORT INFORMATION
  Report Type: Other
  Country: DE (occurrence: None)
  Receive Date: 20210610
  Receipt Date: 20220626
  Transmission Date: 20220721
  Serious: Yes (Hospitalization)
  Sender: FDA-Public Use
  Company Number: DE-ROCHE-2312028

PATIENT
  Age: 64 Year
  Sex: Female

DRUGS (9)
  1. OCREVUS [Suspect]
     Active Substance: OCRELIZUMAB
     Indication: Relapsing-remitting multiple sclerosis
     Route: 042
     Dates: start: 20190429
  2. OCREVUS [Suspect]
     Active Substance: OCRELIZUMAB
     Route: 042
     Dates: start: 20190513
  3. OCREVUS [Suspect]
     Active Substance: OCRELIZUMAB
     Route: 042
     Dates: start: 20191202
  4. OCREVUS [Suspect]
     Active Substance: OCRELIZUMAB
     Dosage: NEXT MAINTENANCE DOSE DATE: 08/SEP/2020.
     Route: 042
     Dates: start: 20200608
  5. OCREVUS [Suspect]
     Active Substance: OCRELIZUMAB
     Route: 042
     Dates: start: 20201214
  6. OCREVUS [Suspect]
     Active Substance: OCRELIZUMAB
     Route: 042
     Dates: start: 202106
  7. BACLOFEN [Concomitant]
     Active Substance: BACLOFEN
  8. TAMSULOSIN HYDROCHLORIDE [Concomitant]
     Active Substance: TAMSULOSIN HYDROCHLORIDE
  9. DALFAMPRIDINE [Concomitant]
     Active Substance: DALFAMPRIDINE

REACTIONS (10)
  - Cholelithiasis [Recovered/Resolved]
  - Fatigue [Recovered/Resolved]
  - Muscle spasticity [Recovering/Resolving]
  - Blood pressure decreased [Recovered/Resolved]
  - Nasopharyngitis [Recovered/Resolved]
  - Food allergy [Unknown]
  - Fatigue [Recovered/Resolved]
  - Diarrhoea [Recovered/Resolved]
  - Asthma [Recovered/Resolved]
  - Gait disturbance [Recovered/Resolved]

NARRATIVE: CASE EVENT DATE: 20190429
